FAERS Safety Report 19518304 (Version 1)
Quarter: 2021Q3

REPORT INFORMATION
  Report Type: Spontaneous
  Country: US (occurrence: US)
  Receive Date: 20210711
  Receipt Date: 20210711
  Transmission Date: 20211014
  Serious: Yes (Hospitalization)
  Sender: FDA-Public Use
  Company Number: None

PATIENT

DRUGS (1)
  1. KRATOM [Suspect]
     Active Substance: HERBALS\MITRAGYNINE

REACTIONS (2)
  - Withdrawal syndrome [None]
  - Maternal drugs affecting foetus [None]

NARRATIVE: CASE EVENT DATE: 20210710
